FAERS Safety Report 4654689-2 (Version None)
Quarter: 2005Q2

REPORT INFORMATION
  Report Type: 
  Country: None (occurrence: None)
  Receive Date: 20050505
  Receipt Date: 20050505
  Transmission Date: 20051028
  Serious: Yes (Other)
  Sender: FDA-Public Use
  Company Number: None

PATIENT
  Age: 40 Year
  Sex: Female
  Weight: 58.9676 kg

DRUGS (1)
  1. ANCEF [Suspect]
     Indication: SURGERY
     Dosage: 1 GM   IV  PIGGY BACK
     Route: 042
     Dates: start: 20050502

REACTIONS (2)
  - RASH ERYTHEMATOUS [None]
  - RASH MACULAR [None]
